FAERS Safety Report 4995980-X (Version None)
Quarter: 2006Q2

REPORT INFORMATION
  Report Type: 
  Country: None (occurrence: None)
  Receive Date: 20060508
  Receipt Date: 20060330
  Transmission Date: 20061013
  Serious: Yes (Hospitalization)
  Sender: FDA-Public Use
  Company Number: US-MERCK-0603USA04684

PATIENT
  Age: 63 Year
  Sex: Female

DRUGS (2)
  1. VIOXX [Suspect]
     Indication: OSTEOARTHRITIS
     Route: 048
     Dates: start: 20020809, end: 20040101
  2. VIOXX [Suspect]
     Route: 048
     Dates: start: 20020809, end: 20040101

REACTIONS (6)
  - ANXIETY DISORDER [None]
  - BRONCHITIS CHRONIC [None]
  - CHEST PAIN [None]
  - HOMOCYSTINAEMIA [None]
  - LIMB DISCOMFORT [None]
  - MYOCARDIAL INFARCTION [None]
